FAERS Safety Report 7727159-2 (Version None)
Quarter: 2011Q3

REPORT INFORMATION
  Report Type: 
  Country: None (occurrence: None)
  Receive Date: 20110902
  Receipt Date: 20110829
  Transmission Date: 20111222
  Serious: Yes (Hospitalization, Other)
  Sender: FDA-Public Use
  Company Number: VE-ELI_LILLY_AND_COMPANY-VE201109000238

PATIENT
  Age: 61 Year
  Sex: Female

DRUGS (5)
  1. HUMULIN N [Suspect]
     Dosage: UNK, UNKNOWN
     Dates: start: 19990101
  2. HUMULIN R [Suspect]
     Dosage: UNK, UNKNOWN
     Dates: start: 19990101
  3. ALTACE [Concomitant]
     Dosage: UNK
  4. ATENOLOL [Concomitant]
     Dosage: UNK
  5. LERCANIDIPINE [Concomitant]
     Dosage: UNK

REACTIONS (4)
  - DRUG DOSE OMISSION [None]
  - BLOOD PRESSURE ABNORMAL [None]
  - DIABETIC COMA [None]
  - BLOOD GLUCOSE INCREASED [None]
